FAERS Safety Report 20235133 (Version 1)
Quarter: 2021Q4

REPORT INFORMATION
  Report Type: Spontaneous
  Country: US (occurrence: US)
  Receive Date: 20211227
  Receipt Date: 20211227
  Transmission Date: 20220303
  Serious: No
  Sender: FDA-Public Use
  Company Number: US-CELGENE-USA-20211206994

PATIENT
  Sex: Male
  Weight: 98.972 kg

DRUGS (4)
  1. REVLIMID [Suspect]
     Active Substance: LENALIDOMIDE
     Indication: Agranulocytosis
     Dosage: 25 MILLIGRAM
     Route: 048
     Dates: start: 20201211
  2. REVLIMID [Suspect]
     Active Substance: LENALIDOMIDE
     Indication: Diffuse large B-cell lymphoma
     Dosage: 15 MILLIGRAM
     Route: 048
     Dates: start: 202102
  3. REVLIMID [Suspect]
     Active Substance: LENALIDOMIDE
     Indication: Off label use
     Dosage: 10 MILLIGRAM
     Route: 048
     Dates: start: 202107
  4. REVLIMID [Suspect]
     Active Substance: LENALIDOMIDE
     Dosage: 5 MILLIGRAM
     Route: 048
     Dates: start: 202111

REACTIONS (2)
  - Fatigue [Not Recovered/Not Resolved]
  - Respiratory tract congestion [Not Recovered/Not Resolved]
